FAERS Safety Report 13736225 (Version 2)
Quarter: 2017Q3

REPORT INFORMATION
  Report Type: Spontaneous
  Country: GB (occurrence: GB)
  Receive Date: 20170710
  Receipt Date: 20170728
  Transmission Date: 20171127
  Serious: Yes (Other)
  Sender: FDA-Public Use
  Company Number: GB-AUROBINDO-AUR-APL-2017-36659

PATIENT
  Age: 89 Year
  Sex: Male

DRUGS (4)
  1. GENTAMICIN. [Suspect]
     Active Substance: GENTAMICIN
     Indication: OTORRHOEA
  2. GENTAMICIN. [Suspect]
     Active Substance: GENTAMICIN
     Indication: EAR PAIN
     Dosage: 4 MG/KG, ONCE A DAY
     Route: 042
  3. PIPERACILLIN AND TAZOBACTAM [Suspect]
     Active Substance: PIPERACILLIN SODIUM\TAZOBACTAM SODIUM
     Indication: OTORRHOEA
  4. PIPERACILLIN AND TAZOBACTAM [Suspect]
     Active Substance: PIPERACILLIN SODIUM\TAZOBACTAM SODIUM
     Indication: EAR PAIN
     Dosage: 4.5 G, 3 TIMES A DAY
     Route: 042

REACTIONS (6)
  - Abdominal discomfort [Unknown]
  - Candida infection [Unknown]
  - Asthenia [Unknown]
  - Anxiety [Unknown]
  - Contusion [Unknown]
  - Weight decreased [Unknown]
